FAERS Safety Report 9182931 (Version 1)
Quarter: 2013Q1

REPORT INFORMATION
  Report Type: Spontaneous
  Country: FR (occurrence: FR)
  Receive Date: 20130322
  Receipt Date: 20130322
  Transmission Date: 20140127
  Serious: Yes (Other)
  Sender: FDA-Public Use
  Company Number: FR-ALLERGAN-1303815US

PATIENT
  Age: 81 Year
  Sex: Female

DRUGS (7)
  1. COMBIGAN [Suspect]
     Indication: DRUG THERAPY
     Dosage: UNK
     Route: 047
     Dates: start: 20121010, end: 20121017
  2. COMBIGAN [Suspect]
     Dosage: UNK
     Route: 047
     Dates: start: 20121116, end: 20121123
  3. COMBIGAN [Suspect]
     Dosage: UNK
     Route: 047
     Dates: start: 20120108, end: 20120109
  4. BI-TILDIEM [Suspect]
     Indication: PRODUCT USED FOR UNKNOWN INDICATION
     Dosage: 120 MG, BID
     Route: 048
  5. LUCENTIS [Concomitant]
     Indication: PRODUCT USED FOR UNKNOWN INDICATION
     Dosage: UNK
     Dates: start: 20121010
  6. LUCENTIS [Concomitant]
     Dosage: UNK
     Dates: start: 20121116
  7. LUCENTIS [Concomitant]
     Dosage: UNK
     Dates: start: 20130108

REACTIONS (4)
  - Malaise [Recovered/Resolved]
  - Dizziness [Recovered/Resolved]
  - Hypotension [Recovered/Resolved]
  - Bradycardia [Recovered/Resolved]
